FAERS Safety Report 5910040-9 (Version None)
Quarter: 2008Q4

REPORT INFORMATION
  Report Type: 
  Country: None (occurrence: None)
  Receive Date: 20081007
  Receipt Date: 20070813
  Transmission Date: 20090506
  Serious: No
  Sender: FDA-Public Use
  Company Number: US-ASTRAZENECA-2007UW19532

PATIENT
  Age: 64 Year
  Sex: Female
  Weight: 68 kg

DRUGS (7)
  1. ARIMIDEX [Suspect]
     Indication: BREAST CANCER
     Route: 048
  2. FOSAMAX [Concomitant]
  3. LEVOTHYROXINE SODIUM [Concomitant]
  4. SIMVASTATIN [Concomitant]
  5. SULINDAC [Concomitant]
  6. LORAZEPAM [Concomitant]
  7. AMBIEN [Concomitant]

REACTIONS (2)
  - PELVIC PAIN [None]
  - TINNITUS [None]
